FAERS Safety Report 25223714 (Version 1)
Quarter: 2025Q2

REPORT INFORMATION
  Report Type: Spontaneous
  Country: US (occurrence: US)
  Receive Date: 20250422
  Receipt Date: 20250422
  Transmission Date: 20250717
  Serious: No
  Sender: ELI LILLY AND COMPANY
  Company Number: US-ELI_LILLY_AND_COMPANY-US202504004694

PATIENT
  Age: 56 Year
  Sex: Female

DRUGS (6)
  1. EMGALITY [Suspect]
     Active Substance: GALCANEZUMAB-GNLM
     Indication: Migraine
     Route: 058
     Dates: start: 2023
  2. EMGALITY [Suspect]
     Active Substance: GALCANEZUMAB-GNLM
     Indication: Migraine
     Route: 058
     Dates: start: 2023
  3. EMGALITY [Suspect]
     Active Substance: GALCANEZUMAB-GNLM
     Indication: Migraine
     Route: 058
     Dates: start: 2023
  4. EMGALITY [Suspect]
     Active Substance: GALCANEZUMAB-GNLM
     Route: 058
     Dates: start: 20250402
  5. EMGALITY [Suspect]
     Active Substance: GALCANEZUMAB-GNLM
     Route: 058
     Dates: start: 20250402
  6. EMGALITY [Suspect]
     Active Substance: GALCANEZUMAB-GNLM
     Route: 058
     Dates: start: 20250402

REACTIONS (3)
  - Incorrect dose administered by device [Unknown]
  - Injection site discomfort [Unknown]
  - Injection site pain [Recovered/Resolved]

NARRATIVE: CASE EVENT DATE: 20250402
